FAERS Safety Report 6810345-3 (Version None)
Quarter: 2010Q2

REPORT INFORMATION
  Report Type: 
  Country: None (occurrence: None)
  Receive Date: 20100630
  Receipt Date: 20100628
  Transmission Date: 20101027
  Serious: Yes (Death, Other)
  Sender: FDA-Public Use
  Company Number: PHHY2010TR37161

PATIENT
  Age: 81 Year
  Sex: Female

DRUGS (1)
  1. MIACALCIN [Suspect]
     Indication: OSTEOPOROSIS
     Dosage: 200 IU, UNK
     Route: 045
     Dates: start: 20100501

REACTIONS (3)
  - DEVICE RELATED INFECTION [None]
  - INFECTION [None]
  - LUNG DISORDER [None]
